FAERS Safety Report 21682246 (Version 2)
Quarter: 2022Q4

REPORT INFORMATION
  Report Type: Spontaneous
  Country: RU (occurrence: RU)
  Receive Date: 20221205
  Receipt Date: 20221219
  Transmission Date: 20230113
  Serious: Yes (Hospitalization, Other)
  Sender: FDA-Public Use
  Company Number: RU-SECURA BIO, INC.-2022-SECUR-RU000141

PATIENT
  Age: 58 Year

DRUGS (1)
  1. DUVELISIB [Suspect]
     Active Substance: DUVELISIB
     Indication: Product used for unknown indication
     Dosage: UNK

REACTIONS (5)
  - Septic shock [Recovering/Resolving]
  - Body temperature increased [Unknown]
  - Diarrhoea [Unknown]
  - Pneumonia [Unknown]
  - Sepsis [Unknown]

NARRATIVE: CASE EVENT DATE: 20221030
